FAERS Safety Report 10842570 (Version 1)
Quarter: 2015Q1

REPORT INFORMATION
  Report Type: Report from Study
  Country: US (occurrence: US)
  Receive Date: 20150220
  Receipt Date: 20150220
  Transmission Date: 20150721
  Serious: No
  Sender: FDA-Public Use
  Company Number: US-ABBVIE-14P-163-1280287-00

PATIENT
  Age: 44 Year
  Sex: Male

DRUGS (3)
  1. DOXYCYCLINE. [Concomitant]
     Active Substance: DOXYCYCLINE
     Indication: DRY EYE
  2. HUMIRA [Suspect]
     Active Substance: ADALIMUMAB
     Indication: PSORIASIS
     Dates: end: 201311
  3. HUMIRA [Suspect]
     Active Substance: ADALIMUMAB

REACTIONS (5)
  - Injection site pain [Unknown]
  - Wrong technique in drug usage process [Unknown]
  - Incorrect dose administered [Unknown]
  - Psoriasis [Not Recovered/Not Resolved]
  - Drug ineffective [Unknown]

NARRATIVE: CASE EVENT DATE: 20140827
